FAERS Safety Report 24465763 (Version 1)
Quarter: 2024Q4

REPORT INFORMATION
  Report Type: Spontaneous
  Country: US (occurrence: US)
  Receive Date: 20241018
  Receipt Date: 20241018
  Transmission Date: 20250115
  Serious: No
  Sender: ROCHE
  Company Number: US-ROCHE-3531944

PATIENT
  Sex: Female

DRUGS (1)
  1. XOLAIR [Suspect]
     Active Substance: OMALIZUMAB
     Indication: Hypersensitivity
     Route: 065

REACTIONS (6)
  - Mental status changes [Unknown]
  - Amnesia [Unknown]
  - Pruritus [Unknown]
  - Urticaria [Unknown]
  - Off label use [Unknown]
  - General physical health deterioration [Unknown]
